FAERS Safety Report 18553084 (Version 4)
Quarter: 2020Q4

REPORT INFORMATION
  Report Type: Report from Study
  Country: IT (occurrence: IT)
  Receive Date: 20201127
  Receipt Date: 20201214
  Transmission Date: 20210114
  Serious: Yes (Death, Hospitalization)
  Sender: FDA-Public Use
  Company Number: IT-SA-2020SA336617

PATIENT

DRUGS (17)
  1. LIBRAX [Concomitant]
     Active Substance: CHLORDIAZEPOXIDE HYDROCHLORIDE\CLIDINIUM BROMIDE
     Dosage: DOSAGE (TOTAL DAILY DOSE): 5 MG
     Route: 048
     Dates: start: 2018
  2. LANOXIN [Concomitant]
     Active Substance: DIGOXIN
     Dosage: DOSAGE (TOTAL DAILY DOSE): 0.25 MG
     Route: 048
     Dates: start: 20200120
  3. GABAPENTIN. [Concomitant]
     Active Substance: GABAPENTIN
     Dosage: DOSAGE (TOTAL DAILY DOSE): 300 MG
     Route: 048
     Dates: start: 20200505
  4. ISATUXIMAB [Suspect]
     Active Substance: ISATUXIMAB
     Indication: PLASMA CELL MYELOMA
     Dosage: 10 MG/KG, QOW
     Route: 042
     Dates: start: 20201104, end: 20201104
  5. BORTEZOMIB. [Suspect]
     Active Substance: BORTEZOMIB
     Dosage: 1.3 MG/M2, OTHER
     Route: 058
     Dates: start: 20191217, end: 20191217
  6. DEPROX [Concomitant]
     Dosage: DOSAGE (TOTAL DAILY DOSE): 500 MG
     Route: 048
     Dates: start: 20200205
  7. MAALOX [CALCIUM CARBONATE] [Concomitant]
     Active Substance: CALCIUM CARBONATE
     Dosage: TOTAL DAILY DOSE 1 TABLET
     Route: 048
     Dates: start: 2018
  8. LANSOPRAZOLE. [Concomitant]
     Active Substance: LANSOPRAZOLE
     Indication: PROPHYLAXIS
     Dosage: DOSAGE (TOTAL DAILY DOSE): 15 MG
     Route: 048
     Dates: start: 20191217
  9. XANAX [Concomitant]
     Active Substance: ALPRAZOLAM
     Dosage: DOSAGE (TOTAL DAILY DOSE): 8 GTT
     Route: 048
     Dates: start: 2018
  10. ISATUXIMAB [Suspect]
     Active Substance: ISATUXIMAB
     Dosage: 10 MG/KG, QW
     Route: 042
     Dates: start: 20191217, end: 20191217
  11. DEXAMETHASONE. [Suspect]
     Active Substance: DEXAMETHASONE
     Indication: PLASMA CELL MYELOMA
     Dosage: 40 MG, CAN BE GIVEN AT IV OR PO ON THE DAYS OF SAR650984 ADMINISTRATION AND PO OTHERWISE AT D1, D8,
     Route: 065
  12. LENALIDOMIDE [Suspect]
     Active Substance: LENALIDOMIDE
     Dosage: 25 MG, QD
     Route: 048
     Dates: start: 20191217, end: 20191217
  13. DEXAMETHASONE. [Suspect]
     Active Substance: DEXAMETHASONE
     Dosage: 20 MG, CAN BE GIVEN AT IV OR PO ON THE DAYS OF SAR650984 ADMINISTRATION AND PO OTHERWISE: 20 MG/DAY
     Route: 065
     Dates: start: 20191217, end: 20191217
  14. ACICLOVIR [Concomitant]
     Active Substance: ACYCLOVIR
     Indication: PROPHYLAXIS
     Dosage: DOSAGE (TOTAL DAILY DOSE): 800 MG
     Route: 048
     Dates: start: 20191209
  15. BORTEZOMIB. [Suspect]
     Active Substance: BORTEZOMIB
     Indication: PLASMA CELL MYELOMA
     Dosage: 1.3 MG/M2, OTHER
     Route: 058
  16. LENALIDOMIDE [Suspect]
     Active Substance: LENALIDOMIDE
     Indication: PLASMA CELL MYELOMA
     Dosage: 25 MG, QD
     Route: 048
  17. BACTRIM [Concomitant]
     Active Substance: SULFAMETHOXAZOLE\TRIMETHOPRIM
     Indication: PROPHYLAXIS
     Dosage: DOSAGE (TOTAL DAILY DOSE): 2 DF
     Route: 048
     Dates: start: 20191209

REACTIONS (1)
  - COVID-19 [Fatal]

NARRATIVE: CASE EVENT DATE: 20201117
